FAERS Safety Report 4827736-2 (Version None)
Quarter: 2005Q4

REPORT INFORMATION
  Report Type: 
  Country: None (occurrence: None)
  Receive Date: 20051110
  Receipt Date: 20051028
  Transmission Date: 20060501
  Serious: Yes (Hospitalization, Other)
  Sender: FDA-Public Use
  Company Number: USA0510112234

PATIENT
  Age: 72 Year
  Sex: Female
  Weight: 114 kg

DRUGS (5)
  1. HUMULIN 70/30 [Suspect]
     Indication: OVERWEIGHT
     Dosage: 160 U DAY
     Route: 058
  2. VIOXX [Concomitant]
  3. ACETAMINOPHEN [Concomitant]
  4. LIPITOR [Concomitant]
  5. ZOCOR [Concomitant]

REACTIONS (13)
  - ASTHENIA [None]
  - BLOOD GLUCOSE DECREASED [None]
  - CARDIAC FAILURE CONGESTIVE [None]
  - CARDIOMEGALY [None]
  - DIZZINESS [None]
  - GLAUCOMA [None]
  - LOSS OF EMPLOYMENT [None]
  - MYOCARDIAL INFARCTION [None]
  - NASOPHARYNGITIS [None]
  - PHARMACEUTICAL PRODUCT COMPLAINT [None]
  - SCIATICA [None]
  - STRESS [None]
  - VISION BLURRED [None]
